FAERS Safety Report 6425385-6 (Version None)
Quarter: 2009Q4

REPORT INFORMATION
  Report Type: 
  Country: None (occurrence: None)
  Receive Date: 20091103
  Receipt Date: 20091026
  Transmission Date: 20100525
  Serious: Yes (Hospitalization)
  Sender: FDA-Public Use
  Company Number: B0601268A

PATIENT

DRUGS (2)
  1. TOPOTECAN [Suspect]
     Route: 042
     Dates: start: 20090907, end: 20090909
  2. CISPLATIN [Suspect]
     Route: 042
     Dates: start: 20090907, end: 20090909

REACTIONS (5)
  - ATRIAL FIBRILLATION [None]
  - NEUTROPENIA [None]
  - PNEUMONIA [None]
  - PRODUCTIVE COUGH [None]
  - URINARY TRACT INFECTION [None]
